FAERS Safety Report 13365005 (Version 1)
Quarter: 2017Q1

REPORT INFORMATION
  Report Type: Spontaneous
  Country: US (occurrence: US)
  Receive Date: 20170323
  Receipt Date: 20170323
  Transmission Date: 20170429
  Serious: No
  Sender: FDA-Public Use
  Company Number: US-ROCHE-1458397

PATIENT
  Age: 39 Year
  Sex: Female
  Weight: 67.65 kg

DRUGS (6)
  1. ALLEGRON [Concomitant]
     Indication: IDIOPATHIC URTICARIA
     Route: 048
     Dates: start: 20140808
  2. XOLAIR [Suspect]
     Active Substance: OMALIZUMAB
     Indication: IDIOPATHIC URTICARIA
     Route: 058
     Dates: start: 20140303, end: 20140808
  3. ASTELIN [Concomitant]
     Active Substance: AZELASTINE HYDROCHLORIDE
     Indication: CHRONIC SINUSITIS
     Route: 050
     Dates: start: 20140808
  4. PEPCID [Concomitant]
     Active Substance: FAMOTIDINE
     Indication: IDIOPATHIC URTICARIA
     Route: 048
     Dates: start: 20140808
  5. FLONASE [Concomitant]
     Active Substance: FLUTICASONE PROPIONATE
     Indication: CHRONIC SINUSITIS
     Route: 050
     Dates: start: 20140808
  6. SINGULAIR [Concomitant]
     Active Substance: MONTELUKAST SODIUM
     Indication: IDIOPATHIC URTICARIA
     Route: 048
     Dates: start: 20140303

REACTIONS (2)
  - Angioedema [Recovered/Resolved]
  - Swelling [Unknown]

NARRATIVE: CASE EVENT DATE: 20140808
